FAERS Safety Report 22061624 (Version 1)
Quarter: 2023Q1

REPORT INFORMATION
  Report Type: Report from Study
  Country: BR (occurrence: BR)
  Receive Date: 20230304
  Receipt Date: 20230304
  Transmission Date: 20230418
  Serious: Yes (Hospitalization, Other)
  Sender: FDA-Public Use
  Company Number: BR-ABBVIE-19K-020-3013943-00

PATIENT
  Sex: Female

DRUGS (1)
  1. HUMIRA [Suspect]
     Active Substance: ADALIMUMAB
     Indication: Rheumatoid arthritis
     Route: 058
     Dates: start: 20191101

REACTIONS (5)
  - Fall [Unknown]
  - Femur fracture [Unknown]
  - Hypersomnia [Not Recovered/Not Resolved]
  - Fear of falling [Unknown]
  - Bedridden [Not Recovered/Not Resolved]
